FAERS Safety Report 6133823-1 (Version None)
Quarter: 2009Q1

REPORT INFORMATION
  Report Type: 
  Country: None (occurrence: None)
  Receive Date: 20090326
  Receipt Date: 20090317
  Transmission Date: 20090719
  Serious: Yes (Other)
  Sender: FDA-Public Use
  Company Number: US-PFIZER INC-2006102758

PATIENT
  Age: 57 Year
  Sex: Female
  Weight: 56.6 kg

DRUGS (6)
  1. PROVERA [Suspect]
     Indication: HORMONE REPLACEMENT THERAPY
     Dosage: 10 MG, UNK
     Route: 048
     Dates: start: 19960101, end: 19990101
  2. PREMARIN [Suspect]
     Indication: HORMONE REPLACEMENT THERAPY
     Dosage: 0.625 MG, UNK
     Route: 065
     Dates: start: 19960101, end: 19990101
  3. PREMPRO [Suspect]
     Indication: HORMONE REPLACEMENT THERAPY
     Dosage: 0.625/2.5MG
     Route: 065
     Dates: start: 19990101, end: 20020101
  4. ALBUTEROL [Concomitant]
     Indication: ASTHMA
     Dosage: UNK
     Dates: start: 19850101
  5. SINGULAIR ^DIECKMANN^ [Concomitant]
     Indication: ASTHMA
     Dosage: UNK
     Dates: start: 19850101
  6. IPRATROPIUM [Concomitant]
     Indication: ASTHMA
     Dosage: UNK
     Dates: start: 19850101

REACTIONS (1)
  - BREAST CANCER [None]
